FAERS Safety Report 11133476 (Version 1)
Quarter: 2015Q2

REPORT INFORMATION
  Report Type: Report from Study
  Country: LB (occurrence: LB)
  Receive Date: 20150522
  Receipt Date: 20150522
  Transmission Date: 20150821
  Serious: Yes (Hospitalization, Other)
  Sender: FDA-Public Use
  Company Number: PHHY2012LB056488

PATIENT
  Age: 81 Year
  Sex: Male

DRUGS (8)
  1. GLIVEC [Suspect]
     Active Substance: IMATINIB MESYLATE
     Indication: CHRONIC MYELOID LEUKAEMIA
     Dosage: 400 MG, DAILY (DIVIDED TWO TABLETS OF 100 MG AFTER THE BREAKFAST AND TWO TABLETS AFTER THE LUNCH)
     Route: 048
     Dates: start: 20031001
  2. BIOCONDIL [Concomitant]
     Indication: PRODUCT USED FOR UNKNOWN INDICATION
     Dosage: 1 DF, Q12H
     Route: 048
     Dates: start: 2009
  3. NEXIUM [Concomitant]
     Active Substance: ESOMEPRAZOLE MAGNESIUM
     Indication: PRODUCT USED FOR UNKNOWN INDICATION
     Dosage: 1 DF, PER DAY
     Route: 048
     Dates: start: 200906
  4. AMLOR [Concomitant]
     Active Substance: AMLODIPINE BESYLATE
     Indication: PRODUCT USED FOR UNKNOWN INDICATION
     Dosage: 1 DF, QD
     Route: 048
     Dates: start: 20130715
  5. PRETERAX [Concomitant]
     Active Substance: INDAPAMIDE\PERINDOPRIL
     Indication: PRODUCT USED FOR UNKNOWN INDICATION
     Dosage: 1 DF, PER DAY
     Route: 048
     Dates: start: 200906
  6. NEUROBION [Concomitant]
     Active Substance: CYANOCOBALAMIN\PYRIDOXINE\THIAMINE
     Indication: PRODUCT USED FOR UNKNOWN INDICATION
     Dosage: 1 DF, Q8H
     Route: 048
     Dates: start: 200906
  7. SERENOA C [Concomitant]
     Indication: PRODUCT USED FOR UNKNOWN INDICATION
     Dosage: 1 DF, QD
     Route: 048
     Dates: start: 200910
  8. EPREX [Concomitant]
     Active Substance: ERYTHROPOIETIN
     Indication: ANAEMIA
     Dosage: 1 DF PER 3 DAYS
     Route: 065
     Dates: start: 201209

REACTIONS (19)
  - Furuncle [Not Recovered/Not Resolved]
  - Hypertension [Recovering/Resolving]
  - Vomiting [Recovering/Resolving]
  - Back pain [Recovering/Resolving]
  - Fatigue [Not Recovered/Not Resolved]
  - Abdominal pain upper [Recovering/Resolving]
  - Myalgia [Not Recovered/Not Resolved]
  - Asthenia [Not Recovered/Not Resolved]
  - Oedema peripheral [Not Recovered/Not Resolved]
  - Pain in extremity [Recovering/Resolving]
  - Blood creatinine increased [Unknown]
  - Diarrhoea [Recovering/Resolving]
  - Abdominal hernia [Unknown]
  - Anaemia [Not Recovered/Not Resolved]
  - Nausea [Recovering/Resolving]
  - Eye infection [Not Recovered/Not Resolved]
  - Abdominal pain upper [Recovered/Resolved]
  - Bone pain [Recovering/Resolving]
  - Decreased appetite [Not Recovered/Not Resolved]

NARRATIVE: CASE EVENT DATE: 201205
